FAERS Safety Report 4873518-5 (Version None)
Quarter: 2005Q4

REPORT INFORMATION
  Report Type: 
  Country: None (occurrence: None)
  Receive Date: 20051201
  Receipt Date: 20050831
  Transmission Date: 20060501
  Serious: No
  Sender: FDA-Public Use
  Company Number: 2005PV001440

PATIENT
  Age: 63 Year
  Sex: Female
  Weight: 69.4003 kg

DRUGS (8)
  1. BYETTA [Suspect]
     Indication: DIABETES MELLITUS NON-INSULIN-DEPENDENT
     Dosage: 5 MCG; BID; SC
     Route: 058
     Dates: start: 20050813
  2. ANTIBIOTIC [Suspect]
     Route: 065
  3. PEPTO-BISMOL [Suspect]
     Route: 065
  4. GLUCOPHAGE [Concomitant]
  5. ACTOS [Concomitant]
  6. SLEEP AID [Concomitant]
  7. NEURONTIN [Concomitant]
  8. LANTUS [Concomitant]

REACTIONS (9)
  - BLOOD GLUCOSE DECREASED [None]
  - DECREASED APPETITE [None]
  - DIARRHOEA [None]
  - FAECES DISCOLOURED [None]
  - GINGIVAL DISCOLOURATION [None]
  - NAUSEA [None]
  - TONGUE DISCOLOURATION [None]
  - TOOTH DISCOLOURATION [None]
  - WEIGHT DECREASED [None]
